FAERS Safety Report 4449698-2 (Version None)
Quarter: 2004Q3

REPORT INFORMATION
  Report Type: 
  Country: None (occurrence: None)
  Receive Date: 20040913
  Receipt Date: 20040913
  Transmission Date: 20050211
  Serious: No
  Sender: FDA-Public Use
  Company Number: None

PATIENT
  Age: 86 Year
  Sex: Male
  Weight: 71.2147 kg

DRUGS (2)
  1. NAMENDA [Suspect]
     Indication: DEMENTIA
     Dosage: 5 MG ONCE OPHTHALMIC
     Route: 047
     Dates: start: 20040831, end: 20040831
  2. ARICEPT [Concomitant]

REACTIONS (2)
  - AGITATION [None]
  - CONFUSIONAL STATE [None]
